FAERS Safety Report 18715365 (Version 3)
Quarter: 2021Q1

REPORT INFORMATION
  Report Type: Spontaneous
  Country: US (occurrence: US)
  Receive Date: 20210108
  Receipt Date: 20210331
  Transmission Date: 20210419
  Serious: Yes (Hospitalization, Other)
  Sender: FDA-Public Use
  Company Number: US-CLOVIS ONCOLOGY-CLO-2020-002414

PATIENT
  Age: 77 Year
  Sex: Female

DRUGS (7)
  1. TRAMADOL. [Concomitant]
     Active Substance: TRAMADOL
     Indication: PAIN
  2. LOSARTAN POTASSSIUM [Concomitant]
     Active Substance: LOSARTAN POTASSIUM
     Indication: HYPERTENSION
     Dosage: 50 MG
  3. RUBRACA [Suspect]
     Active Substance: RUCAPARIB CAMSYLATE
     Indication: FALLOPIAN TUBE CANCER
     Dosage: 600 MILLIGRAM, BID
     Route: 048
     Dates: start: 20200914, end: 20210223
  4. SIMVASTATIN. [Concomitant]
     Active Substance: SIMVASTATIN
     Indication: BLOOD CHOLESTEROL INCREASED
  5. RUBRACA [Suspect]
     Active Substance: RUCAPARIB CAMSYLATE
     Indication: OVARIAN CANCER
     Dosage: 600 MILLIGRAM, BID
     Dates: start: 20210122, end: 2021
  6. TYLENOL [Concomitant]
     Active Substance: ACETAMINOPHEN
     Indication: PAIN
     Dosage: AS NEEDED
  7. CALCIUM + VIT D [Concomitant]
     Active Substance: CALCIUM\VITAMIN D
     Indication: PRODUCT USED FOR UNKNOWN INDICATION
     Dosage: 1200 MG/2000 IU

REACTIONS (3)
  - Malignant neoplasm progression [Unknown]
  - COVID-19 [Not Recovered/Not Resolved]
  - Kidney infection [Unknown]

NARRATIVE: CASE EVENT DATE: 2020
